FAERS Safety Report 4399082-5 (Version None)
Quarter: 2004Q2

REPORT INFORMATION
  Report Type: 
  Country: None (occurrence: None)
  Receive Date: 20040621
  Receipt Date: 20031121
  Transmission Date: 20050107
  Serious: Yes (Death)
  Sender: FDA-Public Use
  Company Number: 2012366

PATIENT
  Age: 45 Year
  Sex: Male
  Weight: 59.4 kg

DRUGS (6)
  1. OXYCONTIN [Suspect]
     Dosage: ORAL
     Route: 048
  2. PROMETHAZINE [Suspect]
  3. DESIPRAMINE (DESIPRAMINE) [Suspect]
  4. CHLORDIAZEPOXIDE [Suspect]
  5. IBUPROFEN [Suspect]
  6. BENZODIAZEPINES [Suspect]

REACTIONS (2)
  - MULTIPLE DRUG OVERDOSE ACCIDENTAL [None]
  - OVERDOSE [None]
